FAERS Safety Report 10061543 (Version 2)
Quarter: 2014Q2

REPORT INFORMATION
  Report Type: Spontaneous
  Country: US (occurrence: US)
  Receive Date: 20140407
  Receipt Date: 20140616
  Transmission Date: 20141212
  Serious: Yes (Other)
  Sender: FDA-Public Use
  Company Number: US-JNJFOC-20140317069

PATIENT
  Sex: 0

DRUGS (2)
  1. RISPERIDONE [Suspect]
     Indication: SCHIZOPHRENIA
     Route: 048
  2. ILOPERIDONE [Suspect]
     Indication: SCHIZOPHRENIA
     Dosage: 12-24MG/DAY(TREATMENT PERIOD FLEXIBLE DOSE)
     Route: 065

REACTIONS (15)
  - Lower gastrointestinal haemorrhage [Unknown]
  - Concomitant disease progression [Unknown]
  - Dizziness [Unknown]
  - Weight increased [Unknown]
  - Somnolence [Unknown]
  - Sedation [Unknown]
  - Akathisia [Unknown]
  - Extrapyramidal disorder [Unknown]
  - Anxiety [Unknown]
  - Agitation [Unknown]
  - Blood prolactin increased [Unknown]
  - Dry mouth [Unknown]
  - Headache [Unknown]
  - Nasal congestion [Unknown]
  - Weight decreased [Unknown]
